FAERS Safety Report 21195539 (Version 2)
Quarter: 2022Q4

REPORT INFORMATION
  Report Type: Spontaneous
  Country: US (occurrence: US)
  Receive Date: 20220810
  Receipt Date: 20221223
  Transmission Date: 20230113
  Serious: Yes (Hospitalization)
  Sender: FDA-Public Use
  Company Number: US-BRISTOL-MYERS SQUIBB COMPANY-2022-087514

PATIENT
  Age: 63 Year
  Sex: Female
  Weight: 92.079 kg

DRUGS (2)
  1. POMALYST [Suspect]
     Active Substance: POMALIDOMIDE
     Indication: Plasma cell myeloma
     Dosage: 3 MG FOR 21D ON AND 7D OFF
     Route: 048
     Dates: end: 20220803
  2. POMALYST [Suspect]
     Active Substance: POMALIDOMIDE
     Dosage: 21D ON AND 7D OFF
     Route: 048

REACTIONS (2)
  - Upper respiratory tract infection [Unknown]
  - COVID-19 [Not Recovered/Not Resolved]

NARRATIVE: CASE EVENT DATE: 20221218
